FAERS Safety Report 9341159 (Version 1)
Quarter: 2013Q2

REPORT INFORMATION
  Report Type: Spontaneous
  Country: US (occurrence: US)
  Receive Date: 20130611
  Receipt Date: 20130611
  Transmission Date: 20140414
  Serious: No
  Sender: FDA-Public Use
  Company Number: US-009507513-1306USA003597

PATIENT
  Sex: Male

DRUGS (1)
  1. JANUMET XR [Suspect]
     Indication: TYPE 2 DIABETES MELLITUS
     Dosage: 100MG/1000MG
     Route: 048
     Dates: start: 201206, end: 20130527

REACTIONS (4)
  - Bone pain [Recovering/Resolving]
  - Myalgia [Recovering/Resolving]
  - Pain [Recovering/Resolving]
  - Gallbladder pain [Recovered/Resolved]
